FAERS Safety Report 8932998 (Version 2)
Quarter: 2012Q4

REPORT INFORMATION
  Report Type: 
  Country: US (occurrence: US)
  Receive Date: 20121128
  Receipt Date: 20121226
  Transmission Date: 20130627
  Serious: No
  Sender: FDA-Public Use
  Company Number: US-VERTEX PHARMACEUTICAL INC.-2012-025038

PATIENT
  Age: 57 Year
  Sex: Male
  Weight: 83 kg

DRUGS (8)
  1. VX-950 (TELAPREVIR) [Suspect]
     Indication: HEPATITIS C
     Dosage: 750 mg, tid
     Route: 048
     Dates: start: 20121031
  2. RIBASPHERE [Suspect]
     Indication: HEPATITIS C
     Dosage: 600 mg, bid
     Route: 048
     Dates: start: 20121031
  3. PEGASYS [Suspect]
     Indication: HEPATITIS C
     Dosage: 180 ?g, qw
     Route: 058
     Dates: start: 20121031
  4. LORTAB                             /00607101/ [Concomitant]
     Dosage: 1 DF, prn
     Route: 048
  5. VITAMIN D /00107901/ [Concomitant]
     Dosage: 1 DF, qd
     Route: 048
  6. MAGNESIUM [Concomitant]
     Dosage: 1 DF, qd
     Route: 048
  7. POTASSIUM [Concomitant]
  8. VITAMIN B COMPLEX [Concomitant]

REACTIONS (2)
  - Vision blurred [Unknown]
  - Anal pruritus [Unknown]
